FAERS Safety Report 25112145 (Version 1)
Quarter: 2025Q1

REPORT INFORMATION
  Report Type: Spontaneous
  Country: US (occurrence: US)
  Receive Date: 20250324
  Receipt Date: 20250324
  Transmission Date: 20250409
  Serious: Yes (Life-Threatening, Hospitalization)
  Sender: ROCHE
  Company Number: US-ROCHE-10000240261

PATIENT
  Age: 60 Year
  Sex: Female
  Weight: 66 kg

DRUGS (29)
  1. ITOVEBI [Suspect]
     Active Substance: INAVOLISIB
     Indication: Endometrial cancer
     Dosage: 3 MG / 1 EA X 2 QD?USED IN COMBINATION WITH STANDARD DOSES OF PALBOCICLIB AND FULVESTRANT, AS IN THE
     Route: 048
     Dates: start: 20250211
  2. PALBOCICLIB [Suspect]
     Active Substance: PALBOCICLIB
     Indication: Endometrial cancer
     Route: 065
     Dates: start: 20250211
  3. FULVESTRANT [Suspect]
     Active Substance: FULVESTRANT
     Indication: Endometrial cancer
     Route: 065
  4. AMLODIPINE BESYLATE [Concomitant]
     Active Substance: AMLODIPINE BESYLATE
  5. ASPIRIN [Concomitant]
     Active Substance: ASPIRIN
  6. ATORVASTATIN [Concomitant]
     Active Substance: ATORVASTATIN
  7. CALCIUM\VITAMIN D [Concomitant]
     Active Substance: CALCIUM\VITAMIN D
  8. COMPAZINE [Concomitant]
     Active Substance: PROCHLORPERAZINE MALEATE
  9. CYMBALTA [Concomitant]
     Active Substance: DULOXETINE HYDROCHLORIDE
  10. DEXAMETHASONE [Concomitant]
     Active Substance: DEXAMETHASONE
  11. DITROPAN [Concomitant]
     Active Substance: OXYBUTYNIN CHLORIDE
  12. ENALAPRIL [Concomitant]
     Active Substance: ENALAPRIL
  13. IRON [Concomitant]
     Active Substance: IRON
  14. JANUVIA [Concomitant]
     Active Substance: SITAGLIPTIN PHOSPHATE
  15. MAGNESIUM [Concomitant]
     Active Substance: MAGNESIUM
  16. METFORMIN [Concomitant]
     Active Substance: METFORMIN HYDROCHLORIDE
  17. MIRALAX [Concomitant]
     Active Substance: POLYETHYLENE GLYCOL 3350
  18. morphine 5mg IR [Concomitant]
  19. MVM [Concomitant]
  20. OMEPRAZOLE [Concomitant]
     Active Substance: OMEPRAZOLE
  21. ONDANSETRON [Concomitant]
     Active Substance: ONDANSETRON
  22. TAXOL [Concomitant]
     Active Substance: PACLITAXEL
  23. CARBOPLATIN [Concomitant]
     Active Substance: CARBOPLATIN
  24. RIBOCICLIB [Concomitant]
     Active Substance: RIBOCICLIB
  25. LENVATINIB;PEMBROLIZUMAB [Concomitant]
  26. DOSTARLIMAB [Concomitant]
     Active Substance: DOSTARLIMAB
  27. CISPLATIN [Concomitant]
     Active Substance: CISPLATIN
  28. SITAGLIPTIN [Concomitant]
     Active Substance: SITAGLIPTIN
  29. INSULIN NOS [Concomitant]
     Active Substance: INSULIN NOS

REACTIONS (3)
  - Hyperglycaemia [Recovered/Resolved]
  - Diabetic ketoacidosis [Recovered/Resolved]
  - Off label use [Unknown]

NARRATIVE: CASE EVENT DATE: 20250309
